FAERS Safety Report 7794685-X (Version None)
Quarter: 2011Q3

REPORT INFORMATION
  Report Type: 
  Country: None (occurrence: None)
  Receive Date: 20110929
  Receipt Date: 20110920
  Transmission Date: 20111222
  Serious: Yes (Hospitalization)
  Sender: FDA-Public Use
  Company Number: WAES 1109USA02568

PATIENT
  Age: 51 Year
  Sex: Female

DRUGS (2)
  1. OMEPRAZOLE [Concomitant]
  2. JANUVIA [Suspect]
     Indication: TYPE 2 DIABETES MELLITUS
     Dosage: 100 MG/BID; PO
     Route: 048
     Dates: start: 20090612, end: 20090909

REACTIONS (18)
  - GASTRITIS [None]
  - COUGH [None]
  - ABDOMINAL DISTENSION [None]
  - CHILLS [None]
  - GASTROOESOPHAGEAL REFLUX DISEASE [None]
  - GASTROINTESTINAL SOUNDS ABNORMAL [None]
  - DIZZINESS [None]
  - EROSIVE DUODENITIS [None]
  - MELAENA [None]
  - DISEASE PROGRESSION [None]
  - ABDOMINAL PAIN UPPER [None]
  - OESOPHAGITIS [None]
  - MUSCLE SPASMS [None]
  - GASTRITIS HAEMORRHAGIC [None]
  - DYSPEPSIA [None]
  - MALAISE [None]
  - DUODENOGASTRIC REFLUX [None]
  - PEPTIC ULCER [None]
